FAERS Safety Report 6354107-2 (Version None)
Quarter: 2009Q3

REPORT INFORMATION
  Report Type: 
  Country: None (occurrence: None)
  Receive Date: 20090914
  Receipt Date: 20090904
  Transmission Date: 20100115
  Serious: Yes (Hospitalization)
  Sender: FDA-Public Use
  Company Number: NL-ALLERGAN-0912474US

PATIENT

DRUGS (1)
  1. BOTULINUM TOXIN TYPE A [Suspect]
     Indication: CYSTITIS INTERSTITIAL
     Dosage: UNK
     Route: 030
     Dates: start: 20090320, end: 20090320

REACTIONS (1)
  - APPENDICITIS [None]
